FAERS Safety Report 6580654-4 (Version None)
Quarter: 2010Q1

REPORT INFORMATION
  Report Type: 
  Country: None (occurrence: None)
  Receive Date: 20100212
  Receipt Date: 20100203
  Transmission Date: 20100710
  Serious: Yes (Hospitalization)
  Sender: FDA-Public Use
  Company Number: FR-ABBOTT-10P-056-0624093-00

PATIENT
  Age: 56 Year
  Sex: Male

DRUGS (9)
  1. DEPAKOTE [Suspect]
     Indication: DRUG USE FOR UNKNOWN INDICATION
     Dosage: 1500 MG DAILY
     Route: 048
     Dates: start: 20061204
  2. TERALITHE [Suspect]
     Indication: DRUG USE FOR UNKNOWN INDICATION
     Dosage: 800 MG DAILY
     Route: 048
     Dates: start: 19981107, end: 20090923
  3. TERCIAN [Suspect]
     Indication: SCHIZOPHRENIA
     Dosage: 200 MG DAILY
     Route: 048
     Dates: start: 19970320, end: 20090920
  4. TERCIAN [Suspect]
     Dosage: 100 MG DAILY
     Route: 048
     Dates: start: 20090920, end: 20090923
  5. CLOPIXOL [Suspect]
     Indication: SCHIZOPHRENIA
     Dosage: 110 MG PER DAY
     Dates: start: 20060901, end: 20090923
  6. PARKINANE [Suspect]
     Indication: PARKINSON'S DISEASE
     Route: 048
     Dates: start: 19960416
  7. ZOLOFT [Suspect]
     Indication: DEPRESSION
     Dosage: 50 MG DAILY
     Route: 048
     Dates: start: 20090423, end: 20090923
  8. SERESTA [Suspect]
     Indication: ANXIETY
     Dosage: 50 MG FILM COATED TAB- DAILY
     Route: 048
     Dates: end: 20090923
  9. SERESTA [Suspect]
     Dosage: 50 MG FILM COATED TAB- DAILY
     Dates: start: 20090930

REACTIONS (5)
  - AREFLEXIA [None]
  - CONFUSIONAL STATE [None]
  - EXTRAPYRAMIDAL DISORDER [None]
  - HYPERTHERMIA [None]
  - MUSCLE RIGIDITY [None]
